FAERS Safety Report 10380793 (Version 1)
Quarter: 2014Q3

REPORT INFORMATION
  Report Type: Spontaneous
  Country: FR (occurrence: None)
  Receive Date: 20140808
  Receipt Date: 20140808
  Transmission Date: 20150326
  Serious: Yes (Other)
  Sender: FDA-Public Use
  Company Number: FK201403130

PATIENT
  Age: 62 Year
  Sex: Female

DRUGS (6)
  1. XELODA [Suspect]
     Active Substance: CAPECITABINE
     Indication: BREAST CANCER
     Dates: start: 20131127, end: 20140115
  2. METRONOMIC ENDOXAN (CYCLOPHOSPHAMIDE) [Concomitant]
  3. XGEVA [Concomitant]
     Active Substance: DENOSUMAB
  4. ZOMETA [Concomitant]
     Active Substance: ZOLEDRONIC ACID
  5. PAMIDRONATE HOSPIRA (PAMIDRONATE DISODIUM) [Concomitant]
  6. PACLITAXEL 6MG/ML CONCENTRATE FOR SOLUTION FOR INFUSION (PACLITAXEL) (PACLITAXEL) [Suspect]
     Active Substance: PACLITAXEL
     Indication: BREAST CANCER
     Route: 042
     Dates: start: 20130410, end: 20130904

REACTIONS (5)
  - Hepatotoxicity [None]
  - Varices oesophageal [None]
  - Anaemia [None]
  - Portal hypertension [None]
  - Hepatic cirrhosis [None]

NARRATIVE: CASE EVENT DATE: 201401
